FAERS Safety Report 4726227-7 (Version None)
Quarter: 2005Q3

REPORT INFORMATION
  Report Type: 
  Country: None (occurrence: None)
  Receive Date: 20050725
  Receipt Date: 20050711
  Transmission Date: 20060218
  Serious: Yes (Death, Hospitalization, Other)
  Sender: FDA-Public Use
  Company Number: L05-NOR-02371-01

PATIENT
  Age: 80 Year
  Sex: Female

DRUGS (14)
  1. LEVOTHYROXINE [Suspect]
     Indication: BLOOD THYROID STIMULATING HORMONE INCREASED
     Dosage: 125 MCG QD
  2. LEVOTHYROXINE [Suspect]
     Indication: BLOOD THYROID STIMULATING HORMONE INCREASED
     Dosage: 200 MCG QD
  3. LEVOTHYROXINE [Suspect]
     Indication: BLOOD THYROID STIMULATING HORMONE INCREASED
     Dosage: 125 MCG
  4. CIPROFLOXACIN [Suspect]
     Dosage: 750 MG BID PO
     Route: 048
  5. DICLOXACILLIN [Concomitant]
  6. HEPARIN [Concomitant]
  7. CALCITRIOL [Concomitant]
  8. PROPRANOLOL [Concomitant]
  9. RANITIDINE [Concomitant]
  10. FUROSEMIDE [Concomitant]
  11. METHENAMINE HIPPURATE [Concomitant]
  12. PARACETAMOL [Concomitant]
  13. MORPHINE [Concomitant]
  14. ONDASETRON [Concomitant]

REACTIONS (7)
  - DRUG INTERACTION [None]
  - FATIGUE [None]
  - FEMUR FRACTURE [None]
  - HYPOTHYROIDISM [None]
  - OSTEOMYELITIS [None]
  - PATHOLOGICAL FRACTURE [None]
  - THYROID CANCER METASTATIC [None]
